FAERS Safety Report 24563032 (Version 2)
Quarter: 2024Q4

REPORT INFORMATION
  Report Type: Spontaneous
  Country: US (occurrence: US)
  Receive Date: 20241030
  Receipt Date: 20241118
  Transmission Date: 20250115
  Serious: No
  Sender: HETERO
  Company Number: US-HETERO-HET2024US03853

PATIENT
  Age: 73 Year
  Sex: Female

DRUGS (1)
  1. VENLAFAXINE [Suspect]
     Active Substance: VENLAFAXINE HYDROCHLORIDE
     Indication: Product used for unknown indication
     Dosage: 150 MILLIGRAM, BID
     Route: 048
     Dates: start: 20241009

REACTIONS (3)
  - Thinking abnormal [Unknown]
  - Feeling abnormal [Unknown]
  - Tremor [Unknown]
